FAERS Safety Report 19918024 (Version 2)
Quarter: 2021Q4

REPORT INFORMATION
  Report Type: Report from Study
  Country: ES (occurrence: ES)
  Receive Date: 20211005
  Receipt Date: 20211021
  Transmission Date: 20220303
  Serious: Yes (Death, Hospitalization)
  Sender: FDA-Public Use
  Company Number: ES-ROCHE-2907592

PATIENT
  Age: 66 Year
  Sex: Male
  Weight: 80 kg

DRUGS (2)
  1. ATEZOLIZUMAB [Suspect]
     Active Substance: ATEZOLIZUMAB
     Indication: Endocrine neoplasm
     Dosage: ON 13/AUG/2021 RECEIVED MOST RECENT DOSE(1200 MG) OF ATEZOLIZUMAB PRIOR TO ONSET OF SAE
     Route: 041
     Dates: start: 20210118
  2. CABOZANTINIB [Suspect]
     Active Substance: CABOZANTINIB
     Indication: Endocrine neoplasm
     Dosage: ON 02/SEP/2021 RECEIVED MOST RECENT DOSE(20 MG) OF CABOZANTINIB PRIOR TO ONSET OF SAE
     Route: 048
     Dates: start: 20210118

REACTIONS (2)
  - Asthenia [Recovered/Resolved]
  - Hypophysitis [Recovered/Resolved]

NARRATIVE: CASE EVENT DATE: 20210903
